FAERS Safety Report 16571592 (Version 1)
Quarter: 2019Q3

REPORT INFORMATION
  Report Type: Spontaneous
  Country: US (occurrence: US)
  Receive Date: 20190713
  Receipt Date: 20190713
  Transmission Date: 20191004
  Serious: Yes (Other)
  Sender: FDA-Public Use
  Company Number: None

PATIENT
  Age: 47 Year
  Sex: Male
  Weight: 76.5 kg

DRUGS (1)
  1. EQUATE RESTORE TEARS [Suspect]
     Active Substance: CARBOXYMETHYLCELLULOSE SODIUM
     Indication: DRY EYE
     Route: 047

REACTIONS (8)
  - Recalled product [None]
  - Eye inflammation [None]
  - Granuloma [None]
  - Blepharitis [None]
  - Eyelid tumour [None]
  - Dry eye [None]
  - Condition aggravated [None]
  - Foreign body [None]
